FAERS Safety Report 21839561 (Version 1)
Quarter: 2023Q1

REPORT INFORMATION
  Report Type: Spontaneous
  Country: US (occurrence: US)
  Receive Date: 20230109
  Receipt Date: 20230109
  Transmission Date: 20230417
  Serious: No
  Sender: FDA-Public Use
  Company Number: US-JNJFOC-20230109911

PATIENT

DRUGS (1)
  1. SPRAVATO [Suspect]
     Active Substance: ESKETAMINE
     Indication: Product used for unknown indication
     Dosage: 5TH ROUND

REACTIONS (5)
  - Dissociative disorder [Unknown]
  - Crying [Unknown]
  - Panic attack [Unknown]
  - Mental disorder [Unknown]
  - Dyspnoea [Unknown]
